FAERS Safety Report 9055070 (Version 4)
Quarter: 2014Q2

REPORT INFORMATION
  Report Type: Report from Study
  Country: IT (occurrence: IT)
  Receive Date: 20130206
  Receipt Date: 20140613
  Transmission Date: 20141212
  Serious: Yes (Other)
  Sender: FDA-Public Use
  Company Number: IT-ROCHE-1181287

PATIENT
  Age: 71 Year
  Sex: Female

DRUGS (1)
  1. VEMURAFENIB [Suspect]
     Indication: MALIGNANT MELANOMA
     Route: 048
     Dates: start: 20121206

REACTIONS (4)
  - Nodule [Unknown]
  - Acanthoma [Unknown]
  - Squamous cell carcinoma of skin [Recovered/Resolved]
  - Gamma-glutamyltransferase increased [Recovered/Resolved]
